FAERS Safety Report 5349221-4 (Version None)
Quarter: 2007Q2

REPORT INFORMATION
  Report Type: 
  Country: None (occurrence: None)
  Receive Date: 20070607
  Receipt Date: 20070529
  Transmission Date: 20071010
  Serious: Yes (Disabling)
  Sender: FDA-Public Use
  Company Number: GB-AVENTIS-200712756EU

PATIENT
  Age: 73 Year
  Sex: Male
  Weight: 82 kg

DRUGS (10)
  1. FRUSEMIDE [Suspect]
     Indication: CARDIAC FAILURE CONGESTIVE
     Route: 048
     Dates: start: 20070228, end: 20070302
  2. FRUSEMIDE [Suspect]
     Indication: HYPERTENSION
     Route: 048
     Dates: start: 20070228, end: 20070302
  3. FRUSEMIDE [Suspect]
     Indication: OEDEMA
     Route: 048
     Dates: start: 20070228, end: 20070302
  4. BENDROFLUMETHIAZIDE [Suspect]
     Indication: CARDIAC FAILURE CONGESTIVE
     Route: 048
     Dates: start: 20041027, end: 20070226
  5. BENDROFLUMETHIAZIDE [Suspect]
     Indication: HYPERTENSION
     Route: 048
     Dates: start: 20041027, end: 20070226
  6. BENDROFLUMETHIAZIDE [Suspect]
     Indication: OEDEMA
     Route: 048
     Dates: start: 20041027, end: 20070226
  7. ATORVASTATIN [Concomitant]
     Indication: HYPERCHOLESTEROLAEMIA
     Route: 048
     Dates: start: 20041027, end: 20070226
  8. CODEINE PHOSPHATE AND ACETAMINOPHEN [Concomitant]
     Indication: PAIN
     Dosage: DOSE: 1 DF
     Route: 048
     Dates: start: 20060430, end: 20070226
  9. PERINDOPRIL [Concomitant]
     Route: 048
     Dates: start: 20041027, end: 20070226
  10. PERINDOPRIL [Concomitant]
     Indication: HYPERTENSION
     Route: 048
     Dates: start: 20041027, end: 20070226

REACTIONS (1)
  - PEMPHIGOID [None]
